FAERS Safety Report 5383675-2 (Version None)
Quarter: 2007Q3

REPORT INFORMATION
  Report Type: 
  Country: None (occurrence: None)
  Receive Date: 20070706
  Receipt Date: 20070626
  Transmission Date: 20080115
  Serious: Yes (Hospitalization, Other)
  Sender: FDA-Public Use
  Company Number: TPA2007A01372

PATIENT
  Age: 41 Year
  Sex: Female
  Weight: 86.1834 kg

DRUGS (5)
  1. ACTOS [Suspect]
     Indication: TYPE 2 DIABETES MELLITUS
     Dosage: 45 MG, 1 IN 1 D, PER ORAL
     Route: 048
     Dates: start: 20050101
  2. BENAZEPRIL (BENAZEPRIL) [Concomitant]
  3. ZOCOR [Concomitant]
  4. GLIPIZIDE [Concomitant]
  5. HYDROCHLOROTHIAZIDE [Concomitant]

REACTIONS (2)
  - BONE DISORDER [None]
  - HIP ARTHROPLASTY [None]
